FAERS Safety Report 8567279 (Version 2)
Quarter: 2014Q1

REPORT INFORMATION
  Report Type: Spontaneous
  Country: US (occurrence: US)
  Receive Date: 20120517
  Receipt Date: 20140113
  Transmission Date: 20141002
  Serious: Yes (Death, Hospitalization)
  Sender: FDA-Public Use
  Company Number: US-GLAXOSMITHKLINE-A0933110A

PATIENT
  Age: 76 Year
  Sex: Male
  Weight: 139.5 kg

DRUGS (1)
  1. AVANDIA [Suspect]
     Indication: DIABETES MELLITUS
     Route: 048
     Dates: start: 200606, end: 200701

REACTIONS (3)
  - Death [Fatal]
  - Cardiac failure congestive [Unknown]
  - Myocardial infarction [Unknown]
